FAERS Safety Report 11796033 (Version 1)
Quarter: 2015Q4

REPORT INFORMATION
  Report Type: Spontaneous
  Country: IT (occurrence: IT)
  Receive Date: 20151203
  Receipt Date: 20151203
  Transmission Date: 20160305
  Serious: Yes (Other)
  Sender: FDA-Public Use
  Company Number: IT-AUROBINDO-AUR-APL-2015-10859

PATIENT
  Age: 85 Year
  Sex: Female

DRUGS (3)
  1. BISOPROLOL 1.25 MG [Suspect]
     Active Substance: BISOPROLOL
     Indication: PROPHYLAXIS
     Dosage: 1.25 MG DAILY
     Route: 048
     Dates: start: 201502
  2. LASITONE [Suspect]
     Active Substance: FUROSEMIDE\SPIRONOLACTONE
     Indication: PROPHYLAXIS
     Dosage: 25 MG DAILY
     Route: 048
     Dates: start: 201502
  3. LASIX [Suspect]
     Active Substance: FUROSEMIDE
     Indication: PROPHYLAXIS
     Dosage: 25 MG DAILY
     Route: 048
     Dates: start: 201502

REACTIONS (3)
  - Hypoperfusion [Unknown]
  - Hyporesponsive to stimuli [Unknown]
  - Tachypnoea [Unknown]
